FAERS Safety Report 15708643 (Version 3)
Quarter: 2019Q4

REPORT INFORMATION
  Report Type: Report from Study
  Country: ES (occurrence: ES)
  Receive Date: 20181211
  Receipt Date: 20191223
  Transmission Date: 20200122
  Serious: Yes (Hospitalization, Other)
  Sender: FDA-Public Use
  Company Number: ES-BRISTOL-MYERS SQUIBB COMPANY-BMS-2018-072801

PATIENT
  Age: 64 Year
  Sex: Female
  Weight: 67.7 kg

DRUGS (3)
  1. NIVOLUMAB [Suspect]
     Active Substance: NIVOLUMAB
     Indication: TRANSITIONAL CELL CANCER OF RENAL PELVIS AND URETER METASTATIC
     Dosage: 1 DF, UNK
     Route: 042
     Dates: start: 20180626, end: 20180717
  2. BEMIPARIN [Concomitant]
     Active Substance: BEMIPARIN
     Indication: PRODUCT USED FOR UNKNOWN INDICATION
     Dosage: 1 DF, UNK
     Route: 065
     Dates: start: 20180614
  3. IPILIMUMAB [Suspect]
     Active Substance: IPILIMUMAB
     Indication: TRANSITIONAL CELL CANCER OF RENAL PELVIS AND URETER METASTATIC
     Dosage: 1 DF, UNK
     Route: 042
     Dates: start: 20180626, end: 20180717

REACTIONS (2)
  - Headache [Recovered/Resolved]
  - Encephalitis [Recovered/Resolved with Sequelae]

NARRATIVE: CASE EVENT DATE: 20180805
